FAERS Safety Report 10583819 (Version 1)
Quarter: 2014Q4

REPORT INFORMATION
  Report Type: Spontaneous
  Country: US (occurrence: None)
  Receive Date: 20141112
  Receipt Date: 20141112
  Transmission Date: 20150529
  Serious: Yes (Hospitalization, Other)
  Sender: FDA-Public Use
  Company Number: 2014-2439-CLI

PATIENT
  Age: 43 Year
  Sex: Female

DRUGS (3)
  1. LUPRON DEPOT [Suspect]
     Active Substance: LEUPROLIDE ACETATE
     Indication: UTERINE LEIOMYOMA
     Dosage: 11.25 MG, 1EMONTHS, 1 IN 3 M, INJECTION?
     Dates: start: 20140205, end: 201403
  2. ESTRADIOL, NOS (ESTRADIOL) (UNKNOWN) [Suspect]
     Active Substance: ESTRADIOL
     Indication: PRODUCT USED FOR UNKNOWN INDICATION
  3. LUPRON DEPOT [Suspect]
     Active Substance: LEUPROLIDE ACETATE
     Indication: ENDOMETRIOSIS
     Dosage: 11.25 MG, 1EMONTHS, 1 IN 3 M, INJECTION?
     Dates: start: 20140205, end: 201403

REACTIONS (6)
  - Hysterectomy [None]
  - Muscle spasms [None]
  - Blister [None]
  - Lymphoedema [None]
  - Oedema peripheral [None]
  - Bone pain [None]

NARRATIVE: CASE EVENT DATE: 20140428
